FAERS Safety Report 14109724 (Version 1)
Quarter: 2017Q4

REPORT INFORMATION
  Report Type: Spontaneous
  Country: GB (occurrence: GB)
  Receive Date: 20171020
  Receipt Date: 20171020
  Transmission Date: 20180321
  Serious: Yes (Other)
  Sender: FDA-Public Use
  Company Number: GB-DRREDDYS-GER/UKI/17/0094062

PATIENT
  Age: 17 Year
  Sex: Female
  Weight: 19 kg

DRUGS (5)
  1. SERTRALINE [Suspect]
     Active Substance: SERTRALINE HYDROCHLORIDE
     Indication: PARONYCHIA
     Route: 048
  2. COCODAMOL [Concomitant]
     Active Substance: ACETAMINOPHEN\CODEINE PHOSPHATE
     Indication: PRODUCT USED FOR UNKNOWN INDICATION
     Dosage: 30MG/500MG TABLETS. TAKE ONE OR TWO TABLETS UP TO FOUR TIMES A DAY WHEN REQUIRED.
     Dates: start: 20170913
  3. NAPROXEN. [Concomitant]
     Active Substance: NAPROXEN
     Indication: PRODUCT USED FOR UNKNOWN INDICATION
     Dates: start: 20170913
  4. STEMETIL [Concomitant]
     Active Substance: PROCHLORPERAZINE MALEATE
     Indication: PRODUCT USED FOR UNKNOWN INDICATION
     Dosage: 1 TABLET THREE TIMES A DAY.
     Dates: start: 20170913
  5. ZOLMITRIPTAN. [Concomitant]
     Active Substance: ZOLMITRIPTAN
     Indication: MIGRAINE
     Dosage: 1 TABLET AT START OF MIGRAINE. REAPEAT AFTER 2 HOURS IF MIGRAINE RECURS
     Route: 048
     Dates: start: 20170227

REACTIONS (2)
  - Syncope [Recovered/Resolved]
  - Monoplegia [Unknown]

NARRATIVE: CASE EVENT DATE: 20170203
